FAERS Safety Report 13763127 (Version 1)
Quarter: 2017Q3

REPORT INFORMATION
  Report Type: Spontaneous
  Country: ZA (occurrence: ZA)
  Receive Date: 20170718
  Receipt Date: 20170718
  Transmission Date: 20171127
  Serious: Yes (Hospitalization)
  Sender: FDA-Public Use
  Company Number: ZA-ASTELLAS-2017US027645

PATIENT
  Age: 57 Year
  Sex: Male

DRUGS (1)
  1. XTANDI [Suspect]
     Active Substance: ENZALUTAMIDE
     Indication: HORMONE-REFRACTORY PROSTATE CANCER
     Route: 048
     Dates: start: 20170711

REACTIONS (1)
  - Metabolic acidosis [Not Recovered/Not Resolved]
